FAERS Safety Report 5254851-4 (Version None)
Quarter: 2007Q1

REPORT INFORMATION
  Report Type: 
  Country: None (occurrence: None)
  Receive Date: 20070305
  Receipt Date: 20070226
  Transmission Date: 20070707
  Serious: Yes (Other)
  Sender: FDA-Public Use
  Company Number: BR-BRISTOL-MYERS SQUIBB COMPANY-13694369

PATIENT
  Age: 66 Year
  Sex: Female
  Weight: 70 kg

DRUGS (5)
  1. RUBRANOVA INJ [Suspect]
     Indication: PAIN IN EXTREMITY
     Dosage: 1ST DOSE-15000MCG/2ML IM ON 17-FEB-2007 ON 24-FEB-2007 THE 2ND DOSE WAS GIVEN 15000MCG/2ML IM.
     Route: 030
     Dates: start: 20070217, end: 20070224
  2. SIFROL [Concomitant]
     Indication: PARKINSON'S DISEASE
  3. CARBIDOPA AND LEVODOPA [Concomitant]
     Indication: PARKINSON'S DISEASE
  4. AKINETON [Concomitant]
     Indication: PARKINSON'S DISEASE
  5. VITAMIN A PALMITATE + COLECALCIFEROL [Concomitant]
     Indication: OSTEOPOROSIS

REACTIONS (4)
  - DYSPNOEA [None]
  - EAR PRURITUS [None]
  - GENERALISED ERYTHEMA [None]
  - HYPOTENSION [None]
